FAERS Safety Report 18641012 (Version 1)
Quarter: 2020Q4

REPORT INFORMATION
  Report Type: Spontaneous
  Country: US (occurrence: US)
  Receive Date: 20201221
  Receipt Date: 20201221
  Transmission Date: 20210114
  Serious: No
  Sender: FDA-Public Use
  Company Number: US-AMGEN-USASP2020206601

PATIENT

DRUGS (1)
  1. OTEZLA [Suspect]
     Active Substance: APREMILAST
     Indication: ECZEMA
     Dosage: UNK
     Route: 065

REACTIONS (1)
  - Off label use [Unknown]
